FAERS Safety Report 8739493 (Version 2)
Quarter: 2012Q4

REPORT INFORMATION
  Report Type: Report from Study
  Country: AU (occurrence: AU)
  Receive Date: 20120823
  Receipt Date: 20121001
  Transmission Date: 20130627
  Serious: Yes (Other)
  Sender: FDA-Public Use
  Company Number: AU-ROCHE-1103720

PATIENT
  Age: 5 Year
  Sex: Male
  Weight: 49.4 kg

DRUGS (10)
  1. OMALIZUMAB [Suspect]
     Indication: ASTHMA
     Route: 058
     Dates: start: 20070120
  2. OMALIZUMAB [Suspect]
     Route: 058
     Dates: start: 20070424
  3. OMALIZUMAB [Suspect]
     Route: 058
     Dates: start: 20070524, end: 20070524
  4. SYMBICORT [Concomitant]
     Dosage: 200/6
     Route: 065
  5. VENTOLIN [Concomitant]
  6. CICLESONIDE [Concomitant]
  7. SINGULAIR [Concomitant]
  8. RHINOCORT [Concomitant]
  9. ZYRTEC [Concomitant]
  10. PREDNISOLONE [Concomitant]

REACTIONS (1)
  - Anaphylactic reaction [Recovered/Resolved]
